FAERS Safety Report 22152751 (Version 1)
Quarter: 2023Q1

REPORT INFORMATION
  Report Type: Spontaneous
  Country: US (occurrence: None)
  Receive Date: 20230329
  Receipt Date: 20230329
  Transmission Date: 20230417
  Serious: Yes (Other)
  Sender: FDA-Public Use
  Company Number: None

PATIENT
  Age: 69 Year
  Sex: Female
  Weight: 72 kg

DRUGS (9)
  1. CETIRIZINE [Suspect]
     Active Substance: CETIRIZINE HYDROCHLORIDE
     Indication: Allergic sinusitis
     Dosage: FREQUENCY : DAILY;?
     Route: 048
  2. IRBESARTAN [Concomitant]
     Active Substance: IRBESARTAN
  3. OMEPRAZOLE [Concomitant]
     Active Substance: OMEPRAZOLE
  4. ROSUVASTATIN [Concomitant]
     Active Substance: ROSUVASTATIN
  5. CETIRIZINE [Concomitant]
     Active Substance: CETIRIZINE HYDROCHLORIDE
  6. VITAMIN D NOS [Concomitant]
     Active Substance: VITAMIN D NOS
  7. VITAMIN B12 [Concomitant]
     Active Substance: CYANOCOBALAMIN
  8. ASPIRIN [Concomitant]
     Active Substance: ASPIRIN
  9. NAPROSYN [Concomitant]
     Active Substance: NAPROXEN

REACTIONS (3)
  - Therapy interrupted [None]
  - Withdrawal syndrome [None]
  - Hypertensive crisis [None]

NARRATIVE: CASE EVENT DATE: 20230315
